FAERS Safety Report 18615003 (Version 6)
Quarter: 2022Q4

REPORT INFORMATION
  Report Type: Report from Study
  Country: US (occurrence: US)
  Receive Date: 20201214
  Receipt Date: 20221007
  Transmission Date: 20230113
  Serious: Yes (Other)
  Sender: FDA-Public Use
  Company Number: US-TAKEDA-2020TUS036456

PATIENT
  Sex: Female

DRUGS (2)
  1. VEDOLIZUMAB [Suspect]
     Active Substance: VEDOLIZUMAB
     Indication: Colitis ulcerative
     Dosage: 300 MILLIGRAM
     Route: 042
     Dates: start: 20200826
  2. VEDOLIZUMAB [Suspect]
     Active Substance: VEDOLIZUMAB
     Indication: Crohn^s disease
     Dosage: 300 MILLIGRAM, Q4WEEKS
     Route: 042

REACTIONS (9)
  - Crohn^s disease [Not Recovered/Not Resolved]
  - Haemorrhage [Unknown]
  - Eye swelling [Not Recovered/Not Resolved]
  - Weight decreased [Unknown]
  - Vomiting [Unknown]
  - Swelling [Unknown]
  - Laryngitis [Unknown]
  - Product dose omission issue [Unknown]
  - Off label use [Unknown]
